FAERS Safety Report 7203877-X (Version None)
Quarter: 2010Q4

REPORT INFORMATION
  Report Type: 
  Country: None (occurrence: None)
  Receive Date: 20101230
  Receipt Date: 20101210
  Transmission Date: 20110411
  Serious: No
  Sender: FDA-Public Use
  Company Number: US-B.I. PHARMACEUTICALS,INC./RIDGEFIELD-2010-BP-14275BP

PATIENT
  Sex: Female

DRUGS (12)
  1. SPIRIVA [Suspect]
     Indication: CHRONIC OBSTRUCTIVE PULMONARY DISEASE
     Dosage: 18 MCG
     Route: 055
  2. SPIRIVA [Suspect]
     Indication: ASTHMA
  3. FORADIL [Concomitant]
     Indication: CHRONIC OBSTRUCTIVE PULMONARY DISEASE
  4. ALBUTEROL [Concomitant]
     Indication: CHRONIC OBSTRUCTIVE PULMONARY DISEASE
  5. PULMICORT [Concomitant]
     Indication: CHRONIC OBSTRUCTIVE PULMONARY DISEASE
  6. XOPENEX [Concomitant]
     Indication: CHRONIC OBSTRUCTIVE PULMONARY DISEASE
  7. DIOVAN [Concomitant]
     Indication: HYPERTENSION
  8. SINGULAIR [Concomitant]
     Indication: MULTIPLE ALLERGIES
  9. PAXIL [Concomitant]
     Indication: DEPRESSION
  10. BUSPAR [Concomitant]
     Indication: NERVE INJURY
  11. FOLIC ACID [Concomitant]
     Indication: PROPHYLAXIS
  12. LORAZEPAM [Concomitant]
     Indication: ANXIETY

REACTIONS (5)
  - COUGH [None]
  - DIABETES MELLITUS [None]
  - DYSPNOEA [None]
  - SINUS DISORDER [None]
  - THROAT IRRITATION [None]
